FAERS Safety Report 19776356 (Version 2)
Quarter: 2021Q4

REPORT INFORMATION
  Report Type: Report from Study
  Country: EG (occurrence: EG)
  Receive Date: 20210901
  Receipt Date: 20211016
  Transmission Date: 20220303
  Serious: Yes (Death, Hospitalization)
  Sender: FDA-Public Use
  Company Number: NVSC2021EG196552

PATIENT
  Sex: Female

DRUGS (2)
  1. KISQALI [Suspect]
     Active Substance: RIBOCICLIB
     Indication: Invasive lobular breast carcinoma
     Dosage: 600 MG, QD
     Route: 048
     Dates: start: 20210517
  2. FASLODEX [Concomitant]
     Active Substance: FULVESTRANT
     Indication: Product used for unknown indication
     Dosage: UNK (TWO INJECTIONS PER TWO)
     Route: 065
     Dates: start: 20210517

REACTIONS (6)
  - Death [Fatal]
  - Haematuria [Unknown]
  - Vomiting [Unknown]
  - Fatigue [Unknown]
  - Decreased appetite [Unknown]
  - Product physical issue [Unknown]

NARRATIVE: CASE EVENT DATE: 20210528
